FAERS Safety Report 10068888 (Version 5)
Quarter: 2015Q3

REPORT INFORMATION
  Report Type: Report from Study
  Country: CA (occurrence: CA)
  Receive Date: 20140409
  Receipt Date: 20150825
  Transmission Date: 20151125
  Serious: Yes (Hospitalization, Other)
  Sender: FDA-Public Use
  Company Number: PHHY2012CA024106

PATIENT
  Age: 73 Year
  Sex: Male

DRUGS (2)
  1. SANDOSTATIN LAR DEPOT [Suspect]
     Active Substance: OCTREOTIDE ACETATE
     Indication: PANCREATIC NEUROENDOCRINE TUMOUR
     Dosage: 30 MG, QMO
     Route: 030
     Dates: start: 20100908
  2. SANDOSTATIN LAR DEPOT [Suspect]
     Active Substance: OCTREOTIDE ACETATE
     Dosage: 40 MG, QMO
     Route: 030

REACTIONS (9)
  - Insulinoma [Unknown]
  - Urinary tract infection [Recovering/Resolving]
  - Asthenia [Unknown]
  - Anaemia [Unknown]
  - Melanocytic naevus [Unknown]
  - Blood pressure systolic increased [Unknown]
  - Faeces discoloured [Recovered/Resolved]
  - Hypoglycaemia [Not Recovered/Not Resolved]
  - Malignant neoplasm progression [Unknown]

NARRATIVE: CASE EVENT DATE: 20150814
